FAERS Safety Report 4423906-6 (Version None)
Quarter: 2004Q3

REPORT INFORMATION
  Report Type: 
  Country: None (occurrence: None)
  Receive Date: 20040806
  Receipt Date: 20040720
  Transmission Date: 20050211
  Serious: Yes (Life-Threatening)
  Sender: FDA-Public Use
  Company Number: JP_040703881

PATIENT
  Age: 61 Year
  Sex: Female
  Weight: 47 kg

DRUGS (3)
  1. GEMZAR [Suspect]
     Indication: PANCREATIC CARCINOMA
     Dosage: 210 MG OTHER
     Dates: start: 20021213, end: 20030917
  2. RADIATION THERAPY [Concomitant]
  3. VOLTARENE ^CIBA-GEIGY^ (DICLOFENAC SODIUM) [Concomitant]

REACTIONS (5)
  - GASTROINTESTINAL HAEMORRHAGE [None]
  - HEPATIC FAILURE [None]
  - MALIGNANT NEOPLASM PROGRESSION [None]
  - PANCREATIC CARCINOMA [None]
  - WHITE BLOOD CELL COUNT DECREASED [None]
